FAERS Safety Report 12702915 (Version 2)
Quarter: 2019Q4

REPORT INFORMATION
  Report Type: Spontaneous
  Country: CH (occurrence: CH)
  Receive Date: 20160831
  Receipt Date: 20191217
  Transmission Date: 20200122
  Serious: Yes (Congenital Anomaly)
  Sender: FDA-Public Use
  Company Number: CH-TEVA-687665ISR

PATIENT

DRUGS (1)
  1. NEOTIGASON [Suspect]
     Active Substance: ACITRETIN
     Indication: PSORIASIS
     Dosage: THE FATHER TOOK ORAL ACITRETIN ONCE DAILY FOR PSORIASIS
     Route: 050

REACTIONS (2)
  - Paternal exposure timing unspecified [Unknown]
  - Trisomy 18 [Unknown]

NARRATIVE: CASE EVENT DATE: 201511
